FAERS Safety Report 6779826-5 (Version None)
Quarter: 2010Q2

REPORT INFORMATION
  Report Type: 
  Country: None (occurrence: None)
  Receive Date: 20100618
  Receipt Date: 20100607
  Transmission Date: 20101027
  Serious: Yes (Other)
  Sender: FDA-Public Use
  Company Number: US-PFIZER INC-2007084343

PATIENT
  Sex: Female
  Weight: 65.909 kg

DRUGS (5)
  1. CHANTIX [Suspect]
     Indication: SMOKING CESSATION THERAPY
     Dosage: 0.5 MG, 1X/DAY
     Route: 048
     Dates: start: 20070927
  2. CHANTIX [Suspect]
     Dosage: 0.5 MG, 2X/DAY
     Route: 048
     Dates: start: 20070101, end: 20070101
  3. CHANTIX [Suspect]
     Dosage: UNK
     Route: 048
     Dates: start: 20100501
  4. WELLBUTRIN [Concomitant]
     Indication: DEPRESSION
     Dosage: UNK
  5. IBUPROFEN [Concomitant]
     Dosage: UNK

REACTIONS (4)
  - AGITATION [None]
  - FEELING ABNORMAL [None]
  - FRUSTRATION [None]
  - LUNG NEOPLASM MALIGNANT [None]
